FAERS Safety Report 23545504 (Version 1)
Quarter: 2024Q1

REPORT INFORMATION
  Report Type: Spontaneous
  Country: US (occurrence: US)
  Receive Date: 20240220
  Receipt Date: 20240220
  Transmission Date: 20240409
  Serious: Yes (Hospitalization, Other)
  Sender: FDA-Public Use
  Company Number: US-PFIZER INC-202400042888

PATIENT
  Age: 65 Year
  Sex: Female
  Weight: 136.26 kg

DRUGS (15)
  1. PANTOPRAZOLE [Suspect]
     Active Substance: PANTOPRAZOLE
     Dosage: 80 MG, DAILY
     Dates: start: 2017
  2. METOPROLOL [Suspect]
     Active Substance: METOPROLOL
     Dosage: 200 MG, 2X/DAY
     Dates: start: 2017
  3. SUCRALFATE [Suspect]
     Active Substance: SUCRALFATE
     Dosage: 5 TABLETS ONLY TAKES ONE IN THE MORNING AND ONE AT NIGHT.
     Dates: start: 2017
  4. LISINOPRIL [Concomitant]
     Active Substance: LISINOPRIL
     Indication: Hypertension
     Dosage: 40MG ONCE DAILY AT BEDTIME
  5. MONTELUKAST [Concomitant]
     Active Substance: MONTELUKAST SODIUM
     Indication: Sinus disorder
     Dosage: 10MG AT BEDTIME
  6. NIFEDIPINE [Concomitant]
     Active Substance: NIFEDIPINE
     Indication: Blood pressure abnormal
     Dosage: BEEN ON IT FOR AT LEAST 4 YEARS
  7. POTASSIUM CHLORIDE [Concomitant]
     Active Substance: POTASSIUM CHLORIDE
     Indication: Blood potassium decreased
     Dosage: 8MEQ ONE TIME DAILY
  8. FUROSEMIDE [Concomitant]
     Active Substance: FUROSEMIDE
     Indication: Oedema
     Dosage: 20MG TABLET IN THE MORNING
  9. ATORVASTATIN [Concomitant]
     Active Substance: ATORVASTATIN
     Indication: Blood cholesterol abnormal
     Dosage: 40MG ONE TIME A DAY AT BEDTIME
  10. FENOFIBRATE [Concomitant]
     Active Substance: FENOFIBRATE
     Indication: Blood cholesterol abnormal
     Dosage: 145MG ONE TIME DAILY IN THE MORNING
     Dates: start: 2022
  11. ASPIRIN [Concomitant]
     Active Substance: ASPIRIN
     Indication: Anticoagulant therapy
     Dosage: .82 UNKNOWN UNITS ONCE A DAY
  12. DICLOFENAC [Concomitant]
     Active Substance: DICLOFENAC
     Indication: Pain
     Dosage: HAS BEEN USING FOR AT LEAST 7-8 YEARS
  13. FLONASE [Concomitant]
     Active Substance: FLUTICASONE PROPIONATE
     Indication: Chronic obstructive pulmonary disease
     Dosage: ONE SPRAY IN EACH NOSTRIL TWO TIMES DAILY AS NEEDED
     Route: 045
  14. PROCARDIA [Concomitant]
     Active Substance: NIFEDIPINE
     Indication: Cardiac disorder
     Dosage: UNK
  15. MELATONIN [Concomitant]
     Active Substance: MELATONIN
     Indication: Sleep disorder
     Dosage: 5MG AT 5PM AND THEN 5MG AT 10PM

REACTIONS (16)
  - Intestinal obstruction [Unknown]
  - Myocardial infarction [Unknown]
  - Serotonin syndrome [Unknown]
  - Chest discomfort [Unknown]
  - Dyspnoea [Unknown]
  - Constipation [Unknown]
  - Blood glucose increased [Recovered/Resolved]
  - Glycosylated haemoglobin increased [Unknown]
  - Abdominal discomfort [Not Recovered/Not Resolved]
  - Dyspepsia [Unknown]
  - Weight increased [Unknown]
  - Hyperhidrosis [Unknown]
  - Diarrhoea [Unknown]
  - Memory impairment [Unknown]
  - Product prescribing issue [Unknown]
  - Incorrect dose administered [Unknown]

NARRATIVE: CASE EVENT DATE: 20230101
